FAERS Safety Report 7898008-7 (Version None)
Quarter: 2011Q4

REPORT INFORMATION
  Report Type: 
  Country: None (occurrence: None)
  Receive Date: 20111107
  Receipt Date: 20111107
  Transmission Date: 20120403
  Serious: Yes (Life-Threatening)
  Sender: FDA-Public Use
  Company Number: None

PATIENT
  Age: 26 Year
  Sex: Female
  Weight: 70.306 kg

DRUGS (1)
  1. IBUPROFEN [Suspect]
     Indication: HEADACHE
     Dosage: 1 TABLET
     Route: 048
     Dates: start: 20111013, end: 20111016

REACTIONS (3)
  - RESPIRATORY ARREST [None]
  - ROAD TRAFFIC ACCIDENT [None]
  - ANAPHYLACTIC SHOCK [None]
